FAERS Safety Report 19364893 (Version 1)
Quarter: 2021Q2

REPORT INFORMATION
  Report Type: Spontaneous
  Country: US (occurrence: US)
  Receive Date: 20210602
  Receipt Date: 20210602
  Transmission Date: 20210717
  Serious: Yes (Other)
  Sender: FDA-Public Use
  Company Number: US-FRESENIUS KABI-FK202105567

PATIENT
  Age: 41 Year
  Sex: Female

DRUGS (7)
  1. MAGNESIUM SULFATE (MANUFACTURER UNKNOWN) [Suspect]
     Active Substance: MAGNESIUM SULFATE
     Route: 042
  2. LEVOTHYROXINE. [Concomitant]
     Active Substance: LEVOTHYROXINE
     Indication: BASEDOW^S DISEASE
     Route: 065
  3. MAGNESIUM SULFATE (MANUFACTURER UNKNOWN) [Suspect]
     Active Substance: MAGNESIUM SULFATE
     Route: 042
  4. OXYTOCIN INJECTION (MANUFACTURER UNKNOWN) [Suspect]
     Active Substance: OXYTOCIN
     Indication: LABOUR INDUCTION
     Dosage: LOW?DOSE
     Route: 065
  5. MISOPROSTOL. [Concomitant]
     Active Substance: MISOPROSTOL
     Indication: INDUCTION OF CERVIX RIPENING
     Route: 067
  6. INSULIN [Concomitant]
     Active Substance: INSULIN NOS
     Indication: TYPE 2 DIABETES MELLITUS
     Route: 050
  7. MAGNESIUM SULFATE (MANUFACTURER UNKNOWN) [Suspect]
     Active Substance: MAGNESIUM SULFATE
     Indication: SEIZURE PROPHYLAXIS
     Route: 040

REACTIONS (3)
  - Foetal heart rate deceleration abnormality [Recovered/Resolved]
  - Exposure during pregnancy [Recovered/Resolved]
  - Uterine tachysystole [Recovered/Resolved]
